FAERS Safety Report 18451105 (Version 5)
Quarter: 2021Q4

REPORT INFORMATION
  Report Type: Spontaneous
  Country: DE (occurrence: DE)
  Receive Date: 20201030
  Receipt Date: 20211105
  Transmission Date: 20220303
  Serious: Yes (Hospitalization, Disabling, Other)
  Sender: FDA-Public Use
  Company Number: DE-BIOMARINAP-DE-2020-132832

PATIENT
  Age: 44 Year
  Sex: Male
  Weight: 61.5 kg

DRUGS (1)
  1. NAGLAZYME [Suspect]
     Active Substance: GALSULFASE
     Indication: Mucopolysaccharidosis VI
     Dosage: 60 MILLIGRAM, QW
     Route: 042
     Dates: start: 201607

REACTIONS (3)
  - Cervical cord compression [Not Recovered/Not Resolved]
  - Gait disturbance [Unknown]
  - Pain in extremity [Unknown]
